FAERS Safety Report 15888642 (Version 1)
Quarter: 2019Q1

REPORT INFORMATION
  Report Type: Spontaneous
  Country: US (occurrence: US)
  Receive Date: 20190129
  Receipt Date: 20190129
  Transmission Date: 20190417
  Serious: Yes (Other)
  Sender: FDA-Public Use
  Company Number: None

PATIENT
  Age: 54 Year
  Sex: Female
  Weight: 69.3 kg

DRUGS (2)
  1. MULTI VITAMINS [Concomitant]
     Active Substance: VITAMINS
  2. DUREZOL [Suspect]
     Active Substance: DIFLUPREDNATE
     Indication: EPISCLERITIS
     Dosage: ?          OTHER STRENGTH:EMUL;QUANTITY:1 DROP(S);?
     Route: 047
     Dates: start: 20171016, end: 20190118

REACTIONS (6)
  - Glaucoma [None]
  - Vision blurred [None]
  - Cataract [None]
  - Night blindness [None]
  - Product use complaint [None]
  - Product complaint [None]

NARRATIVE: CASE EVENT DATE: 20171016
